FAERS Safety Report 7528943-0 (Version None)
Quarter: 2011Q2

REPORT INFORMATION
  Report Type: 
  Country: None (occurrence: None)
  Receive Date: 20110607
  Receipt Date: 20110525
  Transmission Date: 20111010
  Serious: Yes (Hospitalization)
  Sender: FDA-Public Use
  Company Number: PHHY2010US56475

PATIENT
  Sex: Male
  Weight: 97.07 kg

DRUGS (6)
  1. EXJADE [Suspect]
     Indication: IRON OVERLOAD
     Dosage: 1000 MG, DAILY
     Route: 048
     Dates: start: 20100329
  2. ACTOS [Concomitant]
  3. ZESTORETIC [Concomitant]
  4. PROCRIT [Concomitant]
  5. GLYBURIDE AND METFORMIN HCL [Concomitant]
  6. EXJADE [Suspect]
     Indication: MYELODYSPLASTIC SYNDROME
     Dosage: 2000 MG, DAILY
     Route: 048
     Dates: start: 20100309

REACTIONS (2)
  - MYOCARDIAL INFARCTION [None]
  - SERUM FERRITIN INCREASED [None]
